FAERS Safety Report 9887348 (Version 3)
Quarter: 2014Q1

REPORT INFORMATION
  Report Type: Report from Study
  Country: CA (occurrence: CA)
  Receive Date: 20140211
  Receipt Date: 20140314
  Transmission Date: 20141002
  Serious: Yes (Hospitalization, Other)
  Sender: FDA-Public Use
  Company Number: CA-BRISTOL-MYERS SQUIBB COMPANY-20141446

PATIENT
  Age: 67 Year
  Sex: Female

DRUGS (10)
  1. ORENCIA [Suspect]
     Indication: RHEUMATOID ARTHRITIS
     Dosage: LAST DOSE: 03MAR2014
     Dates: start: 20110111
  2. FOLIC ACID [Concomitant]
  3. ALENDRONATE [Concomitant]
  4. CALCIUM [Concomitant]
  5. OMEPRAZOLE [Concomitant]
  6. MICARDIS [Concomitant]
  7. SYNTHROID [Concomitant]
  8. AMLODIPINE [Concomitant]
  9. PREDNISONE [Concomitant]
  10. METHOTREXATE [Concomitant]

REACTIONS (5)
  - Pulmonary fibrosis [Unknown]
  - Lung infection [Unknown]
  - Myalgia [Recovering/Resolving]
  - Dyspnoea [Recovering/Resolving]
  - Pulmonary embolism [Unknown]
